FAERS Safety Report 4647441-5 (Version None)
Quarter: 2005Q2

REPORT INFORMATION
  Report Type: 
  Country: None (occurrence: None)
  Receive Date: 20050426
  Receipt Date: 20050417
  Transmission Date: 20051028
  Serious: Yes (Other)
  Sender: FDA-Public Use
  Company Number: 2005061198

PATIENT
  Sex: Male
  Weight: 90.7194 kg

DRUGS (7)
  1. LIPITOR [Suspect]
     Dosage: 1 IN 1 D, ORAL
     Route: 048
  2. LISINOPRIL [Concomitant]
  3. CLOPIDOGREL BISULFATE [Concomitant]
  4. ASPIRIN [Concomitant]
  5. ETODOLAC [Concomitant]
  6. TOCOPHEROL (TOCOPHEROL) [Concomitant]
  7. ANTITHROMBOTIC AGENTS (ANTITHROMBOTIC AGENTS) [Concomitant]

REACTIONS (2)
  - MUSCLE SPASMS [None]
  - VASCULAR BYPASS GRAFT [None]
